FAERS Safety Report 9682031 (Version 1)
Quarter: 2013Q4

REPORT INFORMATION
  Report Type: Spontaneous
  Country: US (occurrence: US)
  Receive Date: 20131111
  Receipt Date: 20131111
  Transmission Date: 20140711
  Serious: Yes (Hospitalization)
  Sender: FDA-Public Use
  Company Number: US-MPIJNJ-2013MPI000859

PATIENT
  Sex: 0

DRUGS (1)
  1. VELCADE [Suspect]
     Indication: T-CELL LYMPHOMA

REACTIONS (2)
  - Upper airway obstruction [Unknown]
  - Off label use [Unknown]
